FAERS Safety Report 23931145 (Version 1)
Quarter: 2024Q2

REPORT INFORMATION
  Report Type: Spontaneous
  Country: US (occurrence: US)
  Receive Date: 20240603
  Receipt Date: 20240603
  Transmission Date: 20240715
  Serious: Yes (Hospitalization)
  Sender: FDA-Public Use
  Company Number: US-CHEPLA-2024006711

PATIENT

DRUGS (6)
  1. HYDROXYUREA [Suspect]
     Active Substance: HYDROXYUREA
     Dates: start: 202307
  2. OXBRYTA [Suspect]
     Active Substance: VOXELOTOR
     Indication: Sickle cell disease
     Dosage: 3 TIMES DAILY?DAILY DOSE: 1500 MILLIGRAM
     Route: 048
  3. OXBRYTA [Suspect]
     Active Substance: VOXELOTOR
     Indication: Malaise
     Dosage: 3 TIMES DAILY?DAILY DOSE: 1500 MILLIGRAM
     Route: 048
  4. OXBRYTA [Suspect]
     Active Substance: VOXELOTOR
     Indication: Headache
     Dosage: 3 TIMES DAILY?DAILY DOSE: 1500 MILLIGRAM
     Route: 048
  5. ENDARI [Concomitant]
     Active Substance: GLUTAMINE
  6. FOLIC ACID [Concomitant]
     Active Substance: FOLIC ACID

REACTIONS (2)
  - Sickle cell anaemia with crisis [Unknown]
  - Diarrhoea [Recovered/Resolved]
